FAERS Safety Report 9767989 (Version 1)
Quarter: 2013Q4

REPORT INFORMATION
  Report Type: Spontaneous
  Country: US (occurrence: None)
  Receive Date: 20131217
  Receipt Date: 20131217
  Transmission Date: 20140711
  Serious: Yes (Hospitalization)
  Sender: FDA-Public Use
  Company Number: 083194

PATIENT
  Sex: Female
  Weight: 64 kg

DRUGS (1)
  1. CIMZIA [Suspect]
     Indication: CROHN^S DISEASE
     Dosage: (200 MG 1X/2 WEEKS), (400 MG 1X/MONTH) , (INDUCTION DOSE)

REACTIONS (4)
  - Crohn^s disease [None]
  - Anal fistula [None]
  - Abscess [None]
  - Nausea [None]
